FAERS Safety Report 9838436 (Version 1)
Quarter: 2013Q4

REPORT INFORMATION
  Report Type: Spontaneous
  Country: US (occurrence: None)
  Receive Date: 20131206
  Receipt Date: 20131206
  Transmission Date: 20140711
  Serious: Yes (Other)
  Sender: FDA-Public Use
  Company Number: 374123

PATIENT
  Age: 38 Year
  Sex: Male

DRUGS (2)
  1. NOVOLOG [Suspect]
     Indication: TYPE 1 DIABETES MELLITUS
     Dosage: 1 UNIT PER 20 GRAMS OF CARBOHYDRATES
     Route: 058
     Dates: start: 2000
  2. LEVEMIR (INSULIN DETEMIR) SOLUTION FOR INJECTION, .0024MOL/L [Concomitant]

REACTIONS (3)
  - Incorrect dose administered [None]
  - Blood glucose increased [None]
  - Hypoglycaemic unconsciousness [None]
